FAERS Safety Report 6410162-2 (Version None)
Quarter: 2009Q4

REPORT INFORMATION
  Report Type: 
  Country: None (occurrence: None)
  Receive Date: 20091022
  Receipt Date: 20091012
  Transmission Date: 20100525
  Serious: Yes (Other)
  Sender: FDA-Public Use
  Company Number: GR-ROCHE-662722

PATIENT

DRUGS (1)
  1. XENICAL [Suspect]
     Dates: start: 20081101, end: 20081201

REACTIONS (2)
  - CONSTIPATION [None]
  - LIVER DISORDER [None]
